FAERS Safety Report 16855794 (Version 1)
Quarter: 2019Q4

REPORT INFORMATION
  Report Type: Spontaneous
  Country: US (occurrence: US)
  Receive Date: 20190926
  Receipt Date: 20190926
  Transmission Date: 20200122
  Serious: No
  Sender: FDA-Public Use
  Company Number: None

PATIENT
  Age: 45 Year
  Sex: Female
  Weight: 73.9 kg

DRUGS (3)
  1. DIVALPROEX SODIUM ER [Concomitant]
     Active Substance: DIVALPROEX SODIUM
     Dates: start: 20190726
  2. BENZTROPINE. [Concomitant]
     Active Substance: BENZTROPINE
     Dates: start: 20190726, end: 20190815
  3. OLANZAPINE. [Suspect]
     Active Substance: OLANZAPINE
     Indication: PSYCHOTIC DISORDER
     Dosage: ?          OTHER FREQUENCY:TOTAL DAILY DOSE;?
     Route: 048
     Dates: start: 20190729, end: 20190815

REACTIONS (2)
  - Electrocardiogram T wave abnormal [None]
  - Electrocardiogram QT prolonged [None]

NARRATIVE: CASE EVENT DATE: 20190815
